FAERS Safety Report 15794412 (Version 1)
Quarter: 2019Q1

REPORT INFORMATION
  Report Type: Spontaneous
  Country: US (occurrence: US)
  Receive Date: 20190106
  Receipt Date: 20190106
  Transmission Date: 20190417
  Serious: Yes (Life-Threatening, Hospitalization, Disabling)
  Sender: FDA-Public Use
  Company Number: None

PATIENT
  Age: 57 Year
  Sex: Male
  Weight: 113.4 kg

DRUGS (9)
  1. LEVOTHYROXINE NA [Concomitant]
     Active Substance: LEVOTHYROXINE SODIUM
  2. ALLOPURINOL. [Concomitant]
     Active Substance: ALLOPURINOL
  3. DOGOXIN [Concomitant]
  4. LIOTHYRONINE NA 50MCG [Concomitant]
  5. COMPLETE MULTIVITAMIN EQUIVALENT [Concomitant]
  6. OXYCODONE HCL 5 MG / 5 ML ORAL SOLUTION BOTTLE 500 ML CII [Suspect]
     Active Substance: OXYCODONE HYDROCHLORIDE
     Indication: PAIN
     Dosage: ?          QUANTITY:4 TEASPOON(S);?
     Route: 048
     Dates: start: 20160116, end: 20180304
  7. PANTOPRAZOLE NA [Concomitant]
     Active Substance: PANTOPRAZOLE SODIUM
  8. VITAMIN D2 [Concomitant]
     Active Substance: ERGOCALCIFEROL
  9. OXYCODONE/ACETAMINOPHEN [Concomitant]
     Active Substance: ACETAMINOPHEN\OXYCODONE HYDROCHLORIDE

REACTIONS (12)
  - Tachycardia [None]
  - Sinus operation [None]
  - Condition aggravated [None]
  - Diarrhoea [None]
  - Intervertebral disc degeneration [None]
  - Spinal column stenosis [None]
  - Gout [None]
  - Inappropriate schedule of product administration [None]
  - Pain [None]
  - Piloerection [None]
  - Nerve injury [None]
  - Spinal osteoarthritis [None]

NARRATIVE: CASE EVENT DATE: 20180305
